FAERS Safety Report 13967342 (Version 1)
Quarter: 2017Q3

REPORT INFORMATION
  Report Type: Spontaneous
  Country: US (occurrence: None)
  Receive Date: 20170914
  Receipt Date: 20170914
  Transmission Date: 20171128
  Serious: Yes (Other)
  Sender: FDA-Public Use
  Company Number: None

PATIENT
  Age: 10 Year
  Sex: Female

DRUGS (6)
  1. PAIN FILTER SET [Concomitant]
  2. TOBRAMYCIN 300MG/5ML [Suspect]
     Active Substance: TOBRAMYCIN
     Indication: CYSTIC FIBROSIS
     Dosage: DOSE - 300MG/5ML?FREQUENCY - 1 VIAL BID?ROUTE - ORAL NEBULIZED
     Route: 048
     Dates: start: 20170818
  3. PASILE MUS NEBULIZER [Concomitant]
  4. PULMO-AID COMPRESSOR [Concomitant]
  5. PREI ADULT MASK [Concomitant]
  6. BUBBLES THE FISH II [Concomitant]

REACTIONS (1)
  - Cough [None]

NARRATIVE: CASE EVENT DATE: 20170913
